FAERS Safety Report 25541645 (Version 2)
Quarter: 2025Q3

REPORT INFORMATION
  Report Type: Spontaneous
  Country: US (occurrence: US)
  Receive Date: 20250711
  Receipt Date: 20250908
  Transmission Date: 20251021
  Serious: No
  Sender: TEIKOKU
  Company Number: US-TPU-TPU-2025-00306

PATIENT
  Sex: Female

DRUGS (1)
  1. LIDOCAINE PATCH [Suspect]
     Active Substance: LIDOCAINE
     Indication: Pain
     Dates: start: 20250629

REACTIONS (3)
  - Visual impairment [Unknown]
  - Drug ineffective for unapproved indication [Unknown]
  - Gait inability [Unknown]
